FAERS Safety Report 8433369-1 (Version None)
Quarter: 2012Q2

REPORT INFORMATION
  Report Type: 
  Country: None (occurrence: None)
  Receive Date: 20120613
  Receipt Date: 20120611
  Transmission Date: 20120825
  Serious: Yes (Disabling, Other)
  Sender: FDA-Public Use
  Company Number: US-MERCK-1205USA04758

PATIENT
  Age: 50 Year
  Sex: Female

DRUGS (3)
  1. DEPAKOTE [Concomitant]
     Route: 065
  2. SINEMET [Suspect]
     Indication: PARKINSON'S DISEASE
     Route: 048
     Dates: start: 20100101
  3. CITALOPRAM [Concomitant]
     Route: 065

REACTIONS (5)
  - INCONTINENCE [None]
  - ABASIA [None]
  - PAIN [None]
  - OVERDOSE [None]
  - ADVERSE EVENT [None]
